FAERS Safety Report 4685949-7 (Version None)
Quarter: 2005Q2

REPORT INFORMATION
  Report Type: 
  Country: None (occurrence: None)
  Receive Date: 20050606
  Receipt Date: 20050520
  Transmission Date: 20051028
  Serious: Yes (Hospitalization, Other)
  Sender: FDA-Public Use
  Company Number: L05-USA-01898-01

PATIENT
  Age: 38 Year
  Sex: Female
  Weight: 61.2356 kg

DRUGS (5)
  1. CARBAMAZEPINE [Suspect]
     Indication: CONVULSION
     Dates: start: 19850101, end: 20020101
  2. VALPROATE SODIUM [Suspect]
     Indication: CONVULSION
     Dates: start: 19890101, end: 20020201
  3. VALPROATE SODIUM [Suspect]
     Indication: CONVULSION
     Dates: start: 20020201, end: 20020401
  4. CARNITINE [Concomitant]
  5. SYNTHROID [Concomitant]

REACTIONS (8)
  - ADRENAL INSUFFICIENCY [None]
  - ANOREXIA [None]
  - APLASIA PURE RED CELL [None]
  - BONE MARROW DEPRESSION [None]
  - CONVULSION [None]
  - DEMENTIA [None]
  - PANCYTOPENIA [None]
  - WEIGHT DECREASED [None]
